FAERS Safety Report 22141715 (Version 1)
Quarter: 2023Q1

REPORT INFORMATION
  Report Type: Spontaneous
  Country: US (occurrence: None)
  Receive Date: 20230326
  Receipt Date: 20230326
  Transmission Date: 20230417
  Serious: No
  Sender: FDA-Public Use
  Company Number: None

PATIENT
  Age: 27 Year
  Sex: Male
  Weight: 92.25 kg

DRUGS (5)
  1. DEXTROAMPHET SACCHARAT, AMPHET ASPARTATE, DEXTROAMPHET SULFATE AND AMP [Suspect]
     Active Substance: AMPHETAMINE ASPARTATE\AMPHETAMINE SULFATE\DEXTROAMPHETAMINE SACCHARATE\DEXTROAMPHETAMINE SULFATE
     Indication: Attention deficit hyperactivity disorder
     Dosage: 30 TABLES DAILY ORAL
     Route: 048
     Dates: start: 20230321, end: 20230325
  2. LEXAPRO [Concomitant]
     Active Substance: ESCITALOPRAM OXALATE
  3. CYMBALTA [Concomitant]
     Active Substance: DULOXETINE HYDROCHLORIDE
  4. GEODON [Concomitant]
     Active Substance: ZIPRASIDONE HYDROCHLORIDE\ZIPRASIDONE MESYLATE
  5. ADDERALL [Concomitant]
     Active Substance: AMPHETAMINE ASPARTATE\AMPHETAMINE SULFATE\DEXTROAMPHETAMINE SACCHARATE\DEXTROAMPHETAMINE SULFATE

REACTIONS (19)
  - Product supply issue [None]
  - Feeling abnormal [None]
  - Dyspnoea [None]
  - Malaise [None]
  - Feeling abnormal [None]
  - Abdominal pain upper [None]
  - Irritability [None]
  - Depression [None]
  - Anxiety [None]
  - Disturbance in attention [None]
  - Symptom recurrence [None]
  - Therapeutic response changed [None]
  - Emotional distress [None]
  - Pain [None]
  - Product complaint [None]
  - Product substitution issue [None]
  - Drug ineffective [None]
  - Anger [None]
  - Product formulation issue [None]

NARRATIVE: CASE EVENT DATE: 20230325
